FAERS Safety Report 9264036 (Version 1)
Quarter: 2013Q2

REPORT INFORMATION
  Report Type: Spontaneous
  Country: VE (occurrence: VE)
  Receive Date: 20130430
  Receipt Date: 20130430
  Transmission Date: 20140414
  Serious: Yes (Other)
  Sender: FDA-Public Use
  Company Number: VE-PFIZER INC-2013128500

PATIENT
  Age: 78 Year
  Sex: Male

DRUGS (1)
  1. CADUET [Suspect]
     Dosage: 5 MG/20 MG, 1X/DAY

REACTIONS (2)
  - Arterial occlusive disease [Not Recovered/Not Resolved]
  - Drug ineffective [Not Recovered/Not Resolved]
